FAERS Safety Report 4541678-1 (Version None)
Quarter: 2004Q4

REPORT INFORMATION
  Report Type: 
  Country: None (occurrence: None)
  Receive Date: 20041227
  Receipt Date: 20041214
  Transmission Date: 20050328
  Serious: Yes (Other)
  Sender: FDA-Public Use
  Company Number: 2004US000444

PATIENT
  Age: 52 Year
  Sex: Female

DRUGS (4)
  1. ADENOSCAN [Suspect]
     Indication: SCAN MYOCARDIAL PERFUSION
     Dosage: 140.00 UG/KG/MIN.X6 MINUTES, INTRAVENOUS
     Route: 042
  2. CARDIOLITE [Concomitant]
  3. HYDROCHLOROTHIAZIDE [Concomitant]
  4. CLONIDINE [Concomitant]

REACTIONS (2)
  - CHEST PAIN [None]
  - ELECTROCARDIOGRAM ST SEGMENT ELEVATION [None]
